FAERS Safety Report 8504148-1 (Version None)
Quarter: 2012Q2

REPORT INFORMATION
  Report Type: 
  Country: None (occurrence: None)
  Receive Date: 20120405
  Receipt Date: 20101027
  Transmission Date: 20120825
  Serious: Yes (Other)
  Sender: FDA-Public Use
  Company Number: PHHY2010US75487

PATIENT
  Age: 46 Year
  Sex: Female
  Weight: 57.6 kg

DRUGS (6)
  1. VITAMIN D [Concomitant]
  2. ESTRACE [Concomitant]
  3. MULTIVITAMINS (ASCORBIC ACID, ERGOCALCIFEROL, FOLIC ACID, NICOTINAMIDE [Concomitant]
  4. HYDROCHLOROTHIAZIDE [Concomitant]
  5. RECLAST [Suspect]
     Indication: OSTEOPOROSIS
     Dosage: 5 MG, YEARLY, INTRAVENOUS
     Route: 042
     Dates: start: 20100408
  6. ESTRING [Concomitant]

REACTIONS (3)
  - BONE PAIN [None]
  - ARTHRALGIA [None]
  - PAIN IN EXTREMITY [None]
